FAERS Safety Report 18555594 (Version 3)
Quarter: 2020Q4

REPORT INFORMATION
  Report Type: Report from Study
  Country: ES (occurrence: ES)
  Receive Date: 20201127
  Receipt Date: 20201208
  Transmission Date: 20210114
  Serious: Yes (Life-Threatening, Hospitalization, Other)
  Sender: FDA-Public Use
  Company Number: ES-BRISTOL-MYERS SQUIBB COMPANY-BMS-2020-101127

PATIENT
  Age: 73 Year
  Sex: Male
  Weight: 115 kg

DRUGS (3)
  1. NIVOLUMAB [Suspect]
     Active Substance: NIVOLUMAB
     Indication: BLADDER CANCER
     Dosage: 480 MILLIGRAM
     Route: 042
     Dates: start: 20200428, end: 20201015
  2. LINRODOSTAT MESYLATE [Suspect]
     Active Substance: LINRODOSTAT MESYLATE
     Indication: BLADDER CANCER
     Dosage: 100 MILLIGRAM
     Route: 048
     Dates: start: 20200428, end: 20201015
  3. RIVAROXABAN [Concomitant]
     Active Substance: RIVAROXABAN
     Indication: PRODUCT USED FOR UNKNOWN INDICATION
     Dosage: 20 MILLIGRAM, EVERY 24 HOURS
     Route: 048
     Dates: start: 20191031

REACTIONS (1)
  - Post procedural sepsis [Recovering/Resolving]

NARRATIVE: CASE EVENT DATE: 20201122
